FAERS Safety Report 10861971 (Version 1)
Quarter: 2015Q1

REPORT INFORMATION
  Report Type: Spontaneous
  Country: US (occurrence: US)
  Receive Date: 20150224
  Receipt Date: 20150224
  Transmission Date: 20150721
  Serious: Yes (Other)
  Sender: FDA-Public Use
  Company Number: US-INCYTE CORPORATION-2015IN000209

PATIENT
  Age: 50 Year
  Sex: Male
  Weight: 115.19 kg

DRUGS (7)
  1. JAKAFI [Suspect]
     Active Substance: RUXOLITINIB
     Indication: POLYCYTHAEMIA VERA
     Dosage: 10 MG, BID
     Route: 048
     Dates: start: 20150109
  2. COREG [Concomitant]
     Active Substance: CARVEDILOL
  3. ASPIRIN. [Concomitant]
     Active Substance: ASPIRIN
  4. TOPROL XL [Concomitant]
     Active Substance: METOPROLOL SUCCINATE
  5. HYDREA [Concomitant]
     Active Substance: HYDROXYUREA
  6. TRIBENZOR [Concomitant]
     Active Substance: AMLODIPINE BESYLATE\HYDROCHLOROTHIAZIDE\OLMESARTAN MEDOXOMIL
  7. VICODIN [Concomitant]
     Active Substance: ACETAMINOPHEN\HYDROCODONE BITARTRATE

REACTIONS (3)
  - Dyspepsia [Recovered/Resolved]
  - Fatigue [Recovered/Resolved]
  - Headache [Recovered/Resolved]

NARRATIVE: CASE EVENT DATE: 20150110
